FAERS Safety Report 22906102 (Version 3)
Quarter: 2024Q1

REPORT INFORMATION
  Report Type: Spontaneous
  Country: US (occurrence: US)
  Receive Date: 20230905
  Receipt Date: 20240228
  Transmission Date: 20240409
  Serious: Yes (Hospitalization, Other)
  Sender: FDA-Public Use
  Company Number: US-HIKMA PHARMACEUTICALS USA INC.-US-H14001-23-64726

PATIENT
  Age: 9 Year
  Sex: Male
  Weight: 40.8 kg

DRUGS (6)
  1. MERCAPTOPURINE [Suspect]
     Active Substance: MERCAPTOPURINE
     Indication: Leukaemia
     Dosage: 90 MILLIGRAM, QD
     Route: 048
     Dates: start: 20220714, end: 20230803
  2. METHOTREXATE [Suspect]
     Active Substance: METHOTREXATE
     Indication: Leukaemia
     Dosage: 15 MILLIGRAM; ONCE
     Route: 037
     Dates: start: 20220714, end: 20230803
  3. METHOTREXATE [Suspect]
     Active Substance: METHOTREXATE
     Indication: Leukaemia
     Dosage: 25 MILLIGRAM; EVERY 7 DAYS
     Route: 048
     Dates: start: 20221215, end: 20230803
  4. PREDNISONE [Suspect]
     Active Substance: PREDNISONE
     Indication: Leukaemia
     Dosage: 25 MILLIGRAM, BID
     Route: 048
     Dates: start: 20230511
  5. RUXOLITINIB [Suspect]
     Active Substance: RUXOLITINIB
     Indication: Leukaemia
     Dosage: 60 MILLIGRAM, BID
     Route: 048
     Dates: start: 20220714, end: 20230803
  6. VINCRISTINE [Suspect]
     Active Substance: VINCRISTINE
     Indication: Leukaemia
     Dosage: 1.8 MILLIGRAM; ONCE
     Route: 042
     Dates: start: 20220725

REACTIONS (1)
  - Febrile neutropenia [Recovered/Resolved]

NARRATIVE: CASE EVENT DATE: 20230802
